FAERS Safety Report 21786201 (Version 3)
Quarter: 2023Q1

REPORT INFORMATION
  Report Type: Other
  Country: JP (occurrence: JP)
  Receive Date: 20221228
  Receipt Date: 20230314
  Transmission Date: 20230418
  Serious: Yes (Other)
  Sender: FDA-Public Use
  Company Number: JP-CHUGAI-2021029976

PATIENT
  Age: 47 Year
  Sex: Female
  Weight: 33 kg

DRUGS (6)
  1. RISDIPLAM [Suspect]
     Active Substance: RISDIPLAM
     Indication: Spinal muscular atrophy
     Route: 048
     Dates: start: 20211020, end: 20211126
  2. RISDIPLAM [Suspect]
     Active Substance: RISDIPLAM
     Route: 048
     Dates: start: 20211129, end: 20220330
  3. RISDIPLAM [Suspect]
     Active Substance: RISDIPLAM
     Route: 048
     Dates: start: 20220405
  4. LANSOPRAZOLE [Concomitant]
     Active Substance: LANSOPRAZOLE
     Dosage: 1 DOSAGE FORM, QD ,BEFORE SLEEP
     Route: 048
     Dates: start: 20060629
  5. ECABET SODIUM [Concomitant]
     Active Substance: ECABET SODIUM
     Dosage: 3 GRAM, BID, MORNING AND EVENING
     Route: 048
     Dates: start: 20060629
  6. SODIUM FERROUS CITRATE [Concomitant]
     Active Substance: SODIUM FERROUS CITRATE
     Dosage: 1 GRAM, BID, AFTER MEAL
     Route: 048
     Dates: start: 20220520

REACTIONS (4)
  - Urinary retention [Recovered/Resolved]
  - Abdominal discomfort [Recovered/Resolved]
  - Abdominal pain lower [Recovered/Resolved]
  - Mouth ulceration [Recovering/Resolving]

NARRATIVE: CASE EVENT DATE: 20211126
